FAERS Safety Report 5355714-6 (Version None)
Quarter: 2007Q2

REPORT INFORMATION
  Report Type: 
  Country: None (occurrence: None)
  Receive Date: 20070613
  Receipt Date: 20070605
  Transmission Date: 20071010
  Serious: Yes (Death, Hospitalization)
  Sender: FDA-Public Use
  Company Number: US-ROCHE-495795

PATIENT
  Age: 19 Year
  Sex: Female
  Weight: 74.5 kg

DRUGS (3)
  1. VESANOID [Suspect]
     Route: 050
     Dates: start: 20070422, end: 20070423
  2. VESANOID [Suspect]
     Dosage: 40MG EVERY 12 HOURS
     Route: 050
     Dates: start: 20070412, end: 20070413
  3. IDARUBICIN HCL [Concomitant]
     Dosage: DOSAGE WAS 20MG, FREQUENCY UNKNOWN
     Route: 065
     Dates: start: 20070413

REACTIONS (4)
  - DISSEMINATED INTRAVASCULAR COAGULATION [None]
  - HYPOXIA [None]
  - RESPIRATORY FAILURE [None]
  - RETINOIC ACID SYNDROME [None]
